FAERS Safety Report 4949097-0 (Version None)
Quarter: 2006Q1

REPORT INFORMATION
  Report Type: 
  Country: None (occurrence: None)
  Receive Date: 20060321
  Receipt Date: 20060130
  Transmission Date: 20060701
  Serious: Yes (Death, Hospitalization)
  Sender: FDA-Public Use
  Company Number: US-MERCK-0601USA03554

PATIENT
  Age: 62 Year
  Sex: Male
  Weight: 115 kg

DRUGS (2)
  1. VIOXX [Suspect]
     Indication: JOINT INJURY
     Route: 048
     Dates: start: 20010203, end: 20010826
  2. VIOXX [Suspect]
     Route: 048
     Dates: start: 20010203, end: 20010826

REACTIONS (3)
  - BACK INJURY [None]
  - CEREBELLAR HAEMORRHAGE [None]
  - RESPIRATORY FAILURE [None]
